FAERS Safety Report 10061225 (Version 2)
Quarter: 2014Q2

REPORT INFORMATION
  Report Type: Spontaneous
  Country: US (occurrence: US)
  Receive Date: 20140407
  Receipt Date: 20140407
  Transmission Date: 20141212
  Serious: Yes (Death)
  Sender: FDA-Public Use
  Company Number: US-BEH-2014041484

PATIENT
  Age: 63 Year
  Sex: Male

DRUGS (1)
  1. ZEMAIRA [Suspect]

REACTIONS (1)
  - Death [Fatal]
